FAERS Safety Report 6704361-X (Version None)
Quarter: 2010Q2

REPORT INFORMATION
  Report Type: 
  Country: None (occurrence: None)
  Receive Date: 20100430
  Receipt Date: 20100427
  Transmission Date: 20101027
  Serious: Yes (Hospitalization, Disabling, Other)
  Sender: FDA-Public Use
  Company Number: PR-MERCK-0612USA04015

PATIENT
  Age: 57 Year
  Sex: Female
  Weight: 58 kg

DRUGS (6)
  1. FOSAMAX [Suspect]
     Indication: OSTEOPOROSIS
     Route: 048
     Dates: end: 20020301
  2. FOSAMAX [Suspect]
     Route: 048
     Dates: start: 20030501, end: 20060101
  3. FOSAMAX [Suspect]
     Route: 048
     Dates: start: 20020601
  4. FOSAMAX [Suspect]
     Route: 048
     Dates: start: 19980101
  5. FOSAMAX PLUS D [Suspect]
     Indication: OSTEOPOROSIS
     Route: 048
     Dates: start: 20090408, end: 20090901
  6. FOSAMAX PLUS D [Suspect]
     Route: 048
     Dates: start: 20080201

REACTIONS (15)
  - BLOOD CHOLESTEROL INCREASED [None]
  - BREAST MASS [None]
  - EDENTULOUS [None]
  - GINGIVAL ABSCESS [None]
  - HYPOTHYROIDISM [None]
  - LYMPHOCYTOSIS [None]
  - NEUTROPENIA [None]
  - OSTEONECROSIS [None]
  - PAIN [None]
  - PERIARTHRITIS [None]
  - PERIODONTITIS [None]
  - RENAL DISORDER [None]
  - THYROIDITIS CHRONIC [None]
  - TOOTH ABSCESS [None]
  - WEIGHT DECREASED [None]
